FAERS Safety Report 4502977-2 (Version None)
Quarter: 2004Q4

REPORT INFORMATION
  Report Type: 
  Country: None (occurrence: None)
  Receive Date: 20041112
  Receipt Date: 20041029
  Transmission Date: 20050328
  Serious: Yes (Other)
  Sender: FDA-Public Use
  Company Number: 2004066045

PATIENT
  Age: 85 Year
  Sex: Male

DRUGS (2)
  1. VIAGRA [Suspect]
     Indication: ILL-DEFINED DISORDER
     Dosage: 12.5 MG
  2. TAMSULOSIN (TAMSULOSIN) [Concomitant]

REACTIONS (1)
  - VENTRICULAR TACHYCARDIA [None]
